FAERS Safety Report 10172030 (Version 2)
Quarter: 2014Q2

REPORT INFORMATION
  Report Type: Spontaneous
  Country: US (occurrence: US)
  Receive Date: 20140515
  Receipt Date: 20140607
  Transmission Date: 20141212
  Serious: Yes (Hospitalization)
  Sender: FDA-Public Use
  Company Number: PHHY2014US058148

PATIENT
  Age: 53 Year
  Sex: Female

DRUGS (10)
  1. POTASSIUM CHLORIDE [Suspect]
     Dosage: 20 MEQ, BID
  2. LISINOPRIL [Suspect]
     Dosage: 10 MG, DAILY
  3. SPIRONOLACTONE [Suspect]
     Dosage: 25 MG, BID
  4. SIMVASTATIN [Concomitant]
     Dosage: 40 MG, DAILY
  5. DIGOXIN [Concomitant]
     Dosage: 0.125 MG, DAILY
  6. FUROSEMIDE [Concomitant]
     Dosage: 40 MG, DAILY
  7. CARVEDILOL [Concomitant]
     Dosage: 25 MG, BID
  8. INSULIN [Concomitant]
     Dosage: 65 U, (40 UNITS EVERY AM, 25 UNITS EVERY PM)
  9. INSULIN [Concomitant]
     Dosage: 10 U, UNK
  10. FERROUS SULFATE [Concomitant]
     Dosage: 325 MG, DAILY

REACTIONS (9)
  - Paralysis [Recovered/Resolved]
  - Muscular weakness [Recovered/Resolved]
  - Abasia [Recovered/Resolved]
  - Paralysis flaccid [Recovered/Resolved]
  - Paraesthesia [Recovered/Resolved]
  - Fall [Recovered/Resolved]
  - Hyperkalaemia [Recovered/Resolved]
  - Atrioventricular block first degree [Recovered/Resolved]
  - Renal failure acute [Unknown]
